FAERS Safety Report 15019246 (Version 1)
Quarter: 2018Q2

REPORT INFORMATION
  Report Type: Spontaneous
  Country: US (occurrence: US)
  Receive Date: 20180617
  Receipt Date: 20180617
  Transmission Date: 20180711
  Serious: No
  Sender: FDA-Public Use
  Company Number: US-JNJFOC-20180535407

PATIENT
  Age: 52 Year
  Sex: Female
  Weight: 75.75 kg

DRUGS (3)
  1. WOMENS ROGAINE UNSCENTED [Suspect]
     Active Substance: MINOXIDIL
     Indication: ACCIDENTAL EXPOSURE TO PRODUCT
     Dosage: USING LESS THAN 1/2 CAPFUL
     Route: 061
     Dates: start: 20180521, end: 20180523
  2. FISH OIL [Concomitant]
     Active Substance: FISH OIL
     Indication: ROUTINE HEALTH MAINTENANCE
     Route: 065
  3. WOMENS ROGAINE UNSCENTED [Suspect]
     Active Substance: MINOXIDIL
     Indication: ALOPECIA
     Dosage: USING LESS THAN 1/2 CAPFUL
     Route: 061
     Dates: start: 20180521, end: 20180523

REACTIONS (5)
  - Eye irritation [Recovering/Resolving]
  - Chest discomfort [Recovering/Resolving]
  - Accidental exposure to product [Unknown]
  - Eye swelling [Recovering/Resolving]
  - Product use in unapproved indication [Unknown]

NARRATIVE: CASE EVENT DATE: 20180521
